FAERS Safety Report 4524865-8 (Version None)
Quarter: 2004Q4

REPORT INFORMATION
  Report Type: 
  Country: None (occurrence: None)
  Receive Date: 20041213
  Receipt Date: 19990924
  Transmission Date: 20050328
  Serious: Yes (Death, Hospitalization)
  Sender: FDA-Public Use
  Company Number: JP-SOLVAY-00399001310

PATIENT
  Age: 3144 Day
  Sex: Male
  Weight: 27.7 kg

DRUGS (6)
  1. CREON [Suspect]
     Indication: CYSTIC FIBROSIS
     Dosage: DAILY DOSE: 3 G. FREQUENCY:UNKNOWN
     Route: 048
     Dates: start: 19961111
  2. MUCODYNE [Concomitant]
     Indication: CYSTIC FIBROSIS
     Dosage: DAILY DOSE: 12 MILLILITRE(S)
     Route: 048
     Dates: start: 19950620
  3. ENTERONON-R [Concomitant]
     Indication: CYSTIC FIBROSIS
     Dosage: DAILY DOSE: 4 GRAM(S)
     Route: 048
     Dates: start: 19950620
  4. HYMERON K1 [Concomitant]
     Indication: CYSTIC FIBROSIS
     Dosage: DAILY DOSE: .6 GRAM(S)
     Route: 048
     Dates: start: 19950620
  5. ALFAROL [Concomitant]
     Indication: CYSTIC FIBROSIS
     Dosage: DAILY DOSE: 2 DOSAGE FORM
     Route: 048
     Dates: start: 19950620
  6. JUVELA [Concomitant]
     Indication: CYSTIC FIBROSIS
     Dosage: DAILY DOSE: 0.5 GRAM(S)
     Route: 048
     Dates: start: 19950620

REACTIONS (15)
  - ASCITES [None]
  - BRONCHIECTASIS [None]
  - COAGULOPATHY [None]
  - GASTRITIS HAEMORRHAGIC [None]
  - HEPATIC CIRRHOSIS [None]
  - HEPATIC FAILURE [None]
  - LARGE INTESTINAL ULCER HAEMORRHAGE [None]
  - PANCREATIC ATROPHY [None]
  - PANCREATITIS CHRONIC [None]
  - PANCYTOPENIA [None]
  - PNEUMONIA [None]
  - RESPIRATORY FAILURE [None]
  - SPLENOMEGALY [None]
  - URINE OUTPUT DECREASED [None]
  - VARICES OESOPHAGEAL [None]
